FAERS Safety Report 12858348 (Version 3)
Quarter: 2016Q4

REPORT INFORMATION
  Report Type: Report from Study
  Country: US (occurrence: US)
  Receive Date: 20161018
  Receipt Date: 20161208
  Transmission Date: 20170207
  Serious: Yes (Death, Life-Threatening, Hospitalization, Congenital Anomaly)
  Sender: FDA-Public Use
  Company Number: PHHO2016US015156

PATIENT
  Age: 67 Year
  Sex: Male
  Weight: 172.34 kg

DRUGS (1)
  1. ACZ885 [Suspect]
     Active Substance: CANAKINUMAB
     Indication: CARDIOVASCULAR EVENT PROPHYLAXIS
     Dosage: 50 MG, UNK
     Route: 058
     Dates: start: 20121228, end: 20160607

REACTIONS (1)
  - Lung squamous cell carcinoma stage IV [Fatal]

NARRATIVE: CASE EVENT DATE: 20160727
